FAERS Safety Report 18034085 (Version 2)
Quarter: 2020Q3

REPORT INFORMATION
  Report Type: Spontaneous
  Country: US (occurrence: US)
  Receive Date: 20200716
  Receipt Date: 20200723
  Transmission Date: 20201103
  Serious: Yes (Life-Threatening, Hospitalization)
  Sender: FDA-Public Use
  Company Number: US-TEVA-2020-US-1799942

PATIENT
  Sex: Female

DRUGS (17)
  1. DEXMEDETOMIDINE. [Suspect]
     Active Substance: DEXMEDETOMIDINE
     Dosage: ADDITIONALLY, SHE RECEIVED INTERMITTENT BOLUSES
     Route: 065
  2. HYDROMORPHONE [Suspect]
     Active Substance: HYDROMORPHONE
     Indication: ANALGESIC THERAPY
     Dosage: AT A MAXIMUM DOSE 0.03 MG/KG/HOUR
     Route: 050
  3. PENTOBARBITAL. [Suspect]
     Active Substance: PENTOBARBITAL
     Indication: SEDATIVE THERAPY
     Route: 065
  4. MIDAZOLAM. [Suspect]
     Active Substance: MIDAZOLAM
     Indication: SEDATIVE THERAPY
     Dosage: AT A MAXIMUM DOSE 0.21 MG/KG/HOUR
     Route: 050
  5. METHADONE [Suspect]
     Active Substance: METHADONE HYDROCHLORIDE
     Indication: ANALGESIC THERAPY
     Route: 065
  6. CISATRACURIUM. [Suspect]
     Active Substance: CISATRACURIUM
     Indication: SEDATIVE THERAPY
     Dosage: AT MAXIMUM DOSE 2 UG/KG/MINUTE
     Route: 050
  7. FENTANYL. [Suspect]
     Active Substance: FENTANYL
     Indication: ANALGESIC THERAPY
     Route: 065
  8. HALOPERIDOL. [Suspect]
     Active Substance: HALOPERIDOL
     Indication: DELIRIUM
     Route: 042
  9. LORAZEPAM. [Suspect]
     Active Substance: LORAZEPAM
     Indication: SEDATIVE THERAPY
     Route: 065
  10. RISPERIDONE. [Suspect]
     Active Substance: RISPERIDONE
     Indication: DELIRIUM
     Dosage: AT NIGHT
     Route: 065
  11. NALOXONE [Concomitant]
     Active Substance: NALOXONE
     Indication: REVERSAL OF OPIATE ACTIVITY
     Route: 065
  12. CISATRACURIUM. [Suspect]
     Active Substance: CISATRACURIUM
     Dosage: ADDITIONALLY, SHE RECEIVED INTERMITTENT BOLUSES
     Route: 065
  13. CLONIDINE. [Suspect]
     Active Substance: CLONIDINE
     Indication: ANALGESIC THERAPY
     Route: 065
  14. HYDROMORPHONE [Suspect]
     Active Substance: HYDROMORPHONE
     Indication: ANALGESIC THERAPY
     Dosage: ADDITIONALLY, SHE RECEIVED INTERMITTENT BOLUSES
     Route: 065
  15. MIDAZOLAM. [Suspect]
     Active Substance: MIDAZOLAM
     Dosage: ADDITIONALLY, SHE RECEIVED INTERMITTENT BOLUSES
     Route: 065
  16. KETAMINE [Suspect]
     Active Substance: KETAMINE
     Indication: ANALGESIC THERAPY
     Route: 065
  17. DEXMEDETOMIDINE. [Suspect]
     Active Substance: DEXMEDETOMIDINE
     Indication: SEDATIVE THERAPY
     Dosage: AT MAXIMUM DOSE 1.5 UG/KG/HOUR
     Route: 050

REACTIONS (3)
  - Sedation [Recovering/Resolving]
  - Delirium [Recovered/Resolved]
  - Off label use [Unknown]
